FAERS Safety Report 7875433-1 (Version None)
Quarter: 2011Q4

REPORT INFORMATION
  Report Type: 
  Country: None (occurrence: None)
  Receive Date: 20111031
  Receipt Date: 20111019
  Transmission Date: 20120403
  Serious: Yes (Other)
  Sender: FDA-Public Use
  Company Number: PHHY2010BR67522

PATIENT
  Sex: Female

DRUGS (4)
  1. FORMOTEROL FUMARATE [Suspect]
     Indication: ASTHMA
  2. CLONAZEPAM [Concomitant]
     Indication: ANXIETY
     Dosage: 2 MG, BID
  3. PREDNISONE [Concomitant]
     Dosage: 200 MG
  4. FORMOTEROL FUMARATE [Suspect]
     Indication: HYPERSENSITIVITY
     Dosage: TWICE A DAY

REACTIONS (6)
  - FATIGUE [None]
  - INFLUENZA [None]
  - HEADACHE [None]
  - DYSPNOEA [None]
  - ABDOMINAL PAIN [None]
  - LUNG DISORDER [None]
